FAERS Safety Report 5755938-X (Version None)
Quarter: 2008Q2

REPORT INFORMATION
  Report Type: 
  Country: None (occurrence: None)
  Receive Date: 20080602
  Receipt Date: 20080501
  Transmission Date: 20081010
  Serious: No
  Sender: FDA-Public Use
  Company Number: US-BAYER-200712815BCC

PATIENT
  Age: 56 Year
  Sex: Male
  Weight: 95 kg

DRUGS (1)
  1. ALEVE (CAPLET) [Suspect]
     Indication: ARTHROPATHY
     Dosage: UNIT DOSE: 220 MG
     Route: 048
     Dates: start: 20070903

REACTIONS (5)
  - ABASIA [None]
  - FEELING ABNORMAL [None]
  - FEELING DRUNK [None]
  - LETHARGY [None]
  - NAUSEA [None]
